FAERS Safety Report 7630001-1 (Version None)
Quarter: 2011Q3

REPORT INFORMATION
  Report Type: 
  Country: None (occurrence: None)
  Receive Date: 20110715
  Receipt Date: 20110704
  Transmission Date: 20111222
  Serious: Yes (Disabling)
  Sender: FDA-Public Use
  Company Number: GER/UKI/11/0018922

PATIENT
  Age: 54 Year
  Sex: Female
  Weight: 73.4 kg

DRUGS (9)
  1. AMLODIPINE [Concomitant]
  2. CO-CODAMOL (PANADEINE CO) [Concomitant]
  3. CLONAZEPAM [Concomitant]
  4. OXYBUTYNIN (OXYBUTYNIN) [Concomitant]
  5. TIZANIDINE HCL [Suspect]
     Indication: ILL-DEFINED DISORDER
  6. INSTILLAGEL [Concomitant]
  7. RAMIPRIL [Concomitant]
  8. OPTIFLO C (OFLOXACIN) [Concomitant]
  9. BACLOFEN [Concomitant]

REACTIONS (2)
  - MUSCLE SPASMS [None]
  - CONDITION AGGRAVATED [None]
